FAERS Safety Report 16332560 (Version 10)
Quarter: 2023Q1

REPORT INFORMATION
  Report Type: Report from Study
  Country: US (occurrence: US)
  Receive Date: 20190520
  Receipt Date: 20230110
  Transmission Date: 20230418
  Serious: Yes (Hospitalization, Other)
  Sender: FDA-Public Use
  Company Number: US-PFIZER INC-2019210421

PATIENT
  Age: 58 Year
  Sex: Female
  Weight: 113 kg

DRUGS (6)
  1. LYRICA [Suspect]
     Active Substance: PREGABALIN
     Indication: Fibromyalgia
     Dosage: 225 MG, TWICE A DAY
     Route: 065
  2. LYRICA [Suspect]
     Active Substance: PREGABALIN
     Indication: Back pain
     Dosage: 225 MG, TWICE A DAY
     Route: 048
  3. LYRICA [Suspect]
     Active Substance: PREGABALIN
     Indication: Diabetic neuropathy
     Dosage: 200 MG, 3X/DAY
     Route: 048
  4. LYRICA [Suspect]
     Active Substance: PREGABALIN
     Indication: Rheumatoid arthritis
  5. LYRICA [Suspect]
     Active Substance: PREGABALIN
     Indication: Myalgia
  6. LYRICA [Suspect]
     Active Substance: PREGABALIN
     Indication: Myositis

REACTIONS (4)
  - COVID-19 [Unknown]
  - Anxiety [Unknown]
  - Cerebral disorder [Unknown]
  - Therapy interrupted [Unknown]

NARRATIVE: CASE EVENT DATE: 20201201
